FAERS Safety Report 17127585 (Version 1)
Quarter: 2019Q4

REPORT INFORMATION
  Report Type: Spontaneous
  Country: FR (occurrence: FR)
  Receive Date: 20191209
  Receipt Date: 20191209
  Transmission Date: 20200122
  Serious: Yes (Hospitalization)
  Sender: FDA-Public Use
  Company Number: FR-ACCORD-163753

PATIENT
  Age: 52 Year
  Sex: Male

DRUGS (3)
  1. NORDAZEPAM [Suspect]
     Active Substance: NORDAZEPAM
     Route: 048
     Dates: start: 20191019, end: 20191019
  2. AMITRIPTYLINE [Suspect]
     Active Substance: AMITRIPTYLINE
     Route: 048
     Dates: start: 20191019, end: 20191019
  3. BROMAZEPAM [Suspect]
     Active Substance: BROMAZEPAM
     Dosage: NC
     Route: 048
     Dates: start: 20191019, end: 20191019

REACTIONS (3)
  - Somnolence [Recovered/Resolved]
  - Confusional state [Recovering/Resolving]
  - Toxicity to various agents [Unknown]

NARRATIVE: CASE EVENT DATE: 20191019
